FAERS Safety Report 25407940 (Version 1)
Quarter: 2025Q2

REPORT INFORMATION
  Report Type: Report from Study
  Country: JP (occurrence: JP)
  Receive Date: 20250606
  Receipt Date: 20250606
  Transmission Date: 20250716
  Serious: Yes (Hospitalization)
  Sender: ABBVIE
  Company Number: JP-ABBVIE-6306561

PATIENT
  Age: 21 Year
  Sex: Male
  Weight: 83.2 kg

DRUGS (9)
  1. RISANKIZUMAB [Suspect]
     Active Substance: RISANKIZUMAB
     Indication: Crohn^s disease
     Route: 058
     Dates: start: 20240612
  2. RISANKIZUMAB [Suspect]
     Active Substance: RISANKIZUMAB
     Indication: Crohn^s disease
     Route: 042
     Dates: start: 20240321, end: 20240612
  3. AMINO ACIDS\CARBOHYDRATES\MINERALS\SOYBEAN OIL\VITAMINS [Concomitant]
     Active Substance: AMINO ACIDS\CARBOHYDRATES\MINERALS\SOYBEAN OIL\VITAMINS
     Indication: Crohn^s disease
     Dosage: COMBINATION POWDER
     Route: 048
     Dates: start: 20230913
  4. BIFIDOBACTERIUM SPP. [Concomitant]
     Active Substance: BIFIDOBACTERIUM SPP.
     Indication: Crohn^s disease
     Dosage: GRANULAR POWDER
     Route: 048
     Dates: start: 20231115
  5. ACETAMINOPHEN [Concomitant]
     Active Substance: ACETAMINOPHEN
     Indication: Crohn^s disease
     Route: 048
     Dates: start: 20231101
  6. BILASTINE [Concomitant]
     Active Substance: BILASTINE
     Indication: Dermatitis allergic
     Route: 048
     Dates: start: 20240319
  7. Heparinoid [Concomitant]
     Indication: Dermatitis allergic
     Route: 061
     Dates: start: 20240319
  8. DIFLUCORTOLONE VALERATE [Concomitant]
     Active Substance: DIFLUCORTOLONE VALERATE
     Indication: Dermatitis allergic
     Dosage: UNIVERSAL CREAM, ADEQUATE DOSE APPLICATION
     Route: 061
     Dates: start: 20240319
  9. KETOCONAZOLE [Concomitant]
     Active Substance: KETOCONAZOLE
     Indication: Dermatitis allergic
     Dosage: ADEQUATE DOSE APPLICATION,
     Route: 061
     Dates: start: 20240713

REACTIONS (1)
  - Enteritis [Recovered/Resolved]

NARRATIVE: CASE EVENT DATE: 20250504
